FAERS Safety Report 11842246 (Version 1)
Quarter: 2015Q4

REPORT INFORMATION
  Report Type: Spontaneous
  Country: US (occurrence: None)
  Receive Date: 20151216
  Receipt Date: 20151216
  Transmission Date: 20160305
  Serious: No
  Sender: FDA-Public Use
  Company Number: None

PATIENT
  Age: 71 Year
  Sex: Female
  Weight: 86.18 kg

DRUGS (15)
  1. PREMARIN [Concomitant]
     Active Substance: ESTROGENS, CONJUGATED
  2. CHROMIUM PICOLINATE [Concomitant]
     Active Substance: CHROMIUM PICOLINATE
  3. VITAMIN D3 [Concomitant]
     Active Substance: CHOLECALCIFEROL
  4. MULTI VITAMIN [Concomitant]
     Active Substance: VITAMINS
  5. INSULIN (HUMULIN 70/30) [Concomitant]
  6. LEVOTHYROXINE. [Suspect]
     Active Substance: LEVOTHYROXINE
     Indication: HYPOTHYROIDISM
     Dosage: 100 MG ONCE DAILY BY MOUTH
     Route: 048
     Dates: start: 20151128, end: 20151201
  7. GLIPIZIDE. [Concomitant]
     Active Substance: GLIPIZIDE
  8. INSULIN (HUMULIN R) [Concomitant]
  9. LEVOTHYROXINE. [Suspect]
     Active Substance: LEVOTHYROXINE
     Indication: THYROID CANCER
     Dosage: 100 MG ONCE DAILY BY MOUTH
     Route: 048
     Dates: start: 20151128, end: 20151201
  10. ASPIRIN. [Concomitant]
     Active Substance: ASPIRIN
  11. VITAMIN B12 [Concomitant]
     Active Substance: CYANOCOBALAMIN
  12. ARMOUR THYROID [Concomitant]
     Active Substance: THYROID, PORCINE\THYROID, UNSPECIFIED
  13. HYDROCHLOROTHIAZIDE. [Concomitant]
     Active Substance: HYDROCHLOROTHIAZIDE
  14. ATENOLOL. [Concomitant]
     Active Substance: ATENOLOL
  15. CALCIUM [Concomitant]
     Active Substance: CALCIUM

REACTIONS (3)
  - No therapeutic response [None]
  - Product substitution issue [None]
  - Back pain [None]
